FAERS Safety Report 8484397-1 (Version None)
Quarter: 2012Q3

REPORT INFORMATION
  Report Type: 
  Country: None (occurrence: None)
  Receive Date: 20120703
  Receipt Date: 20120628
  Transmission Date: 20120928
  Serious: Yes (Hospitalization, Other)
  Sender: FDA-Public Use
  Company Number: PHHY2012BR056263

PATIENT
  Sex: Female

DRUGS (3)
  1. EXELON [Suspect]
     Dosage: 9.5 MG, UNK
     Route: 062
  2. REMINYL ER (GALANTAMINE HYDROBROMIDE) [Concomitant]
     Dosage: 8 MG, UNK
  3. EXELON [Suspect]
     Dosage: 4.6 MG, UNK
     Route: 062

REACTIONS (2)
  - DEMENTIA ALZHEIMER'S TYPE [None]
  - ARRHYTHMIA [None]
